FAERS Safety Report 13832248 (Version 12)
Quarter: 2018Q4

REPORT INFORMATION
  Report Type: Report from Study
  Country: None (occurrence: US)
  Receive Date: 20170804
  Receipt Date: 20181025
  Transmission Date: 20190204
  Serious: Yes (Hospitalization, Other)
  Sender: FDA-Public Use
  Company Number: US-ABBVIE-17K-163-2024199-00

PATIENT
  Sex: Female

DRUGS (8)
  1. GABAPENTIN. [Concomitant]
     Active Substance: GABAPENTIN
     Indication: PRODUCT USED FOR UNKNOWN INDICATION
  2. SIMVASTATIN. [Concomitant]
     Active Substance: SIMVASTATIN
     Indication: PRODUCT USED FOR UNKNOWN INDICATION
  3. METHOCARBAMOL. [Concomitant]
     Active Substance: METHOCARBAMOL
     Indication: PRODUCT USED FOR UNKNOWN INDICATION
  4. HUMIRA [Suspect]
     Active Substance: ADALIMUMAB
     Route: 058
  5. HUMIRA [Suspect]
     Active Substance: ADALIMUMAB
     Indication: RHEUMATOID ARTHRITIS
     Route: 058
     Dates: start: 20160219, end: 201711
  6. PREDNISONE. [Concomitant]
     Active Substance: PREDNISONE
     Indication: PRODUCT USED FOR UNKNOWN INDICATION
  7. MUPIROCIN. [Concomitant]
     Active Substance: MUPIROCIN
     Indication: PRODUCT USED FOR UNKNOWN INDICATION
  8. METOPROLOL. [Concomitant]
     Active Substance: METOPROLOL
     Indication: PRODUCT USED FOR UNKNOWN INDICATION

REACTIONS (20)
  - Hypoaesthesia [Unknown]
  - Lumbar radiculopathy [Recovering/Resolving]
  - Neuralgia [Unknown]
  - Scoliosis [Recovering/Resolving]
  - Intervertebral disc protrusion [Recovering/Resolving]
  - Sensitivity to weather change [Unknown]
  - Paraesthesia [Unknown]
  - Spinal pain [Unknown]
  - Back pain [Unknown]
  - Spinal column stenosis [Recovering/Resolving]
  - Dyschezia [Unknown]
  - Sciatica [Unknown]
  - Post procedural swelling [Unknown]
  - Rheumatoid arthritis [Unknown]
  - Procedural pain [Unknown]
  - Gait disturbance [Unknown]
  - Myalgia [Unknown]
  - Post procedural complication [Unknown]
  - Osteopenia [Unknown]
  - Procedural pain [Unknown]

NARRATIVE: CASE EVENT DATE: 2017
